FAERS Safety Report 13792260 (Version 3)
Quarter: 2018Q3

REPORT INFORMATION
  Report Type: Spontaneous
  Country: JP (occurrence: JP)
  Receive Date: 20170726
  Receipt Date: 20180829
  Transmission Date: 20181010
  Serious: Yes (Hospitalization, Other)
  Sender: FDA-Public Use
  Company Number: PHJP2017JP007979

PATIENT
  Age: 60 Year
  Sex: Male
  Weight: 72 kg

DRUGS (2)
  1. TASIGNA [Suspect]
     Active Substance: NILOTINIB
     Indication: CHRONIC MYELOID LEUKAEMIA
     Dosage: 300 MG, BID
     Route: 048
     Dates: start: 20160212, end: 20160217
  2. TASIGNA [Suspect]
     Active Substance: NILOTINIB
     Dosage: 400 MG, QD
     Route: 048
     Dates: start: 20160225, end: 20170125

REACTIONS (6)
  - Cerebral infarction [Recovered/Resolved]
  - Hemiparesis [Unknown]
  - Dyslalia [Unknown]
  - Atrial fibrillation [Unknown]
  - Syncope [Unknown]
  - Facial paralysis [Unknown]

NARRATIVE: CASE EVENT DATE: 20170125
